FAERS Safety Report 8012704-2 (Version None)
Quarter: 2011Q4

REPORT INFORMATION
  Report Type: 
  Country: None (occurrence: None)
  Receive Date: 20111229
  Receipt Date: 20111227
  Transmission Date: 20120403
  Serious: Yes (Hospitalization, Other)
  Sender: FDA-Public Use
  Company Number: US-JNJFOC-20111000134

PATIENT
  Sex: Male
  Weight: 61.69 kg

DRUGS (7)
  1. DURAGESIC-100 [Suspect]
     Indication: BACK PAIN
     Route: 062
     Dates: start: 20070101, end: 20110921
  2. LYRICA [Concomitant]
     Route: 048
  3. LEVITRA [Concomitant]
     Route: 048
  4. UNKNOWN MEDICATION [Concomitant]
     Route: 048
  5. DURAGESIC-100 [Suspect]
     Indication: NECK PAIN
     Route: 062
     Dates: start: 20070101, end: 20110921
  6. OMEPRAZOLE [Concomitant]
     Route: 048
  7. OXYCODONE HCL [Concomitant]
     Indication: PAIN
     Route: 048

REACTIONS (9)
  - BONE DISORDER [None]
  - GRAND MAL CONVULSION [None]
  - PAIN [None]
  - WEIGHT INCREASED [None]
  - HAEMORRHAGE [None]
  - DEVICE FAILURE [None]
  - DRUG DOSE OMISSION [None]
  - PRODUCT QUALITY ISSUE [None]
  - WITHDRAWAL SYNDROME [None]
